FAERS Safety Report 5761767-3 (Version None)
Quarter: 2008Q2

REPORT INFORMATION
  Report Type: 
  Country: None (occurrence: None)
  Receive Date: 20080603
  Receipt Date: 20080520
  Transmission Date: 20081010
  Serious: Yes (Death)
  Sender: FDA-Public Use
  Company Number: 2008AL005545

PATIENT
  Age: 89 Year
  Sex: Female
  Weight: 70.3075 kg

DRUGS (12)
  1. DIGOXIN [Suspect]
     Indication: ATRIAL FIBRILLATION
     Dosage: 0.125 MG, QD, PO YEARS
     Route: 048
  2. LENOTHYROXIN [Concomitant]
  3. DETROL LA [Concomitant]
  4. GLYBURIDE AND METFORMIN HCL [Concomitant]
  5. ENALAPRIL MALEATE [Concomitant]
  6. TOPEROL XL [Concomitant]
  7. ISOSORBIDE MS [Concomitant]
  8. LASIX [Concomitant]
  9. WANAFIN [Concomitant]
  10. ADVATE [Concomitant]
  11. COMBINENT INHALER [Concomitant]
  12. ADVAIR DISKUS 100/50 [Concomitant]

REACTIONS (3)
  - DISORIENTATION [None]
  - FATIGUE [None]
  - HYPERTENSION [None]
